FAERS Safety Report 23337717 (Version 2)
Quarter: 2024Q2

REPORT INFORMATION
  Report Type: Spontaneous
  Country: CA (occurrence: CA)
  Receive Date: 20231226
  Receipt Date: 20240509
  Transmission Date: 20240716
  Serious: Yes (Hospitalization, Disabling, Other)
  Sender: FDA-Public Use
  Company Number: None

PATIENT
  Age: 38 Year
  Sex: Male
  Weight: 113.4 kg

DRUGS (7)
  1. TRINTELLIX [Suspect]
     Active Substance: VORTIOXETINE HYDROBROMIDE
     Indication: Anxiety
     Dosage: 20 MILLIGRAM, QD
     Route: 048
     Dates: start: 20221231, end: 20230113
  2. ESCITALOPRAM [Suspect]
     Active Substance: ESCITALOPRAM OXALATE
     Indication: Anxiety
     Dosage: 5 MILLIGRAM, QD
     Route: 048
     Dates: start: 20230114
  3. ESCITALOPRAM [Suspect]
     Active Substance: ESCITALOPRAM OXALATE
     Dosage: 10 MILLIGRAM, QD
     Route: 048
     Dates: end: 20230214
  4. ESCITALOPRAM [Suspect]
     Active Substance: ESCITALOPRAM OXALATE
     Dosage: 5 MILLIGRAM
     Route: 048
  5. ESCITALOPRAM [Suspect]
     Active Substance: ESCITALOPRAM OXALATE
     Dosage: 5 MILLIGRAM, QOD
     Route: 048
  6. ATIVAN [Concomitant]
     Active Substance: LORAZEPAM
     Indication: Product used for unknown indication
     Dosage: 1 MILLIGRAM, BID
     Route: 065
  7. ATIVAN [Concomitant]
     Active Substance: LORAZEPAM
     Dosage: 0.5 MILLIGRAM, BID
     Route: 065

REACTIONS (23)
  - Dizziness [Unknown]
  - Suicidal ideation [Unknown]
  - Halo vision [Recovering/Resolving]
  - Photopsia [Recovering/Resolving]
  - Visual field defect [Recovering/Resolving]
  - Antidepressant discontinuation syndrome [Unknown]
  - Tachycardia [Unknown]
  - Insomnia [Unknown]
  - Dyschromatopsia [Unknown]
  - Mental impairment [Unknown]
  - Cognitive disorder [Unknown]
  - Visual snow syndrome [Unknown]
  - Diplopia [Unknown]
  - Vision blurred [Unknown]
  - Visual impairment [Unknown]
  - Sensory loss [Unknown]
  - Body temperature increased [Unknown]
  - Nervous system disorder [Unknown]
  - Crying [Unknown]
  - Condition aggravated [Unknown]
  - Balance disorder [Recovering/Resolving]
  - Depression [Unknown]
  - Product use in unapproved indication [Unknown]

NARRATIVE: CASE EVENT DATE: 20230113
